FAERS Safety Report 8476142-0 (Version None)
Quarter: 2012Q2

REPORT INFORMATION
  Report Type: 
  Country: None (occurrence: None)
  Receive Date: 20120628
  Receipt Date: 20120618
  Transmission Date: 20120825
  Serious: Yes (Hospitalization)
  Sender: FDA-Public Use
  Company Number: JP-ELI_LILLY_AND_COMPANY-JP201205000395

PATIENT
  Sex: Female

DRUGS (4)
  1. REBAMIPIDE [Concomitant]
     Dosage: 100 MG, TID
     Route: 048
     Dates: start: 20110329
  2. ETODOLAC [Concomitant]
     Dosage: 100 MG, TID
     Route: 048
     Dates: start: 20120309
  3. GLAKAY [Concomitant]
     Dosage: 15 MG, TID
     Route: 048
     Dates: start: 20110305
  4. FORTEO [Suspect]
     Indication: OSTEOPOROSIS
     Dosage: 20 UG, QD
     Route: 058
     Dates: start: 20120322, end: 20120430

REACTIONS (1)
  - CARDIAC FAILURE [None]
